FAERS Safety Report 6790958-8 (Version None)
Quarter: 2010Q2

REPORT INFORMATION
  Report Type: 
  Country: None (occurrence: None)
  Receive Date: 20100624
  Receipt Date: 20100616
  Transmission Date: 20101027
  Serious: Yes (Death, Hospitalization, Other)
  Sender: FDA-Public Use
  Company Number: US-MERCK-1006USA00760

PATIENT
  Age: 81 Year
  Sex: Female

DRUGS (1)
  1. JANUVIA [Suspect]
     Indication: DIABETES MELLITUS
     Route: 048
     Dates: start: 20070905, end: 20100101

REACTIONS (14)
  - AORTIC ANEURYSM [None]
  - ATRIAL FIBRILLATION [None]
  - CARDIAC FAILURE [None]
  - CORONARY ARTERY DISEASE [None]
  - ECCHYMOSIS [None]
  - MUSCULAR WEAKNESS [None]
  - OSTEOARTHRITIS [None]
  - OSTEOPOROSIS [None]
  - PULMONARY HYPERTENSION [None]
  - PULMONARY OEDEMA [None]
  - RENAL CYST [None]
  - RENAL FAILURE [None]
  - UPPER LIMB FRACTURE [None]
  - URINARY TRACT INFECTION [None]
